FAERS Safety Report 6892061-5 (Version None)
Quarter: 2010Q3

REPORT INFORMATION
  Report Type: 
  Country: None (occurrence: None)
  Receive Date: 20100731
  Receipt Date: 20080102
  Transmission Date: 20110219
  Serious: No
  Sender: FDA-Public Use
  Company Number: US-PFIZER INC-2008000837

PATIENT
  Sex: Female
  Weight: 54.5 kg

DRUGS (2)
  1. FLAGYL [Suspect]
     Indication: BACTERIAL INFECTION
     Dates: start: 20071210
  2. OLUX [Concomitant]
     Indication: PSORIASIS

REACTIONS (1)
  - SKIN HAEMORRHAGE [None]
